FAERS Safety Report 22625068 (Version 1)
Quarter: 2023Q2

REPORT INFORMATION
  Report Type: Spontaneous
  Country: NL (occurrence: NL)
  Receive Date: 20230621
  Receipt Date: 20230621
  Transmission Date: 20230721
  Serious: Yes (Death)
  Sender: FDA-Public Use
  Company Number: None

PATIENT
  Sex: Female
  Weight: 82 kg

DRUGS (4)
  1. IBRANCE [Suspect]
     Active Substance: PALBOCICLIB
     Indication: Breast cancer metastatic
     Dosage: 125 MG, 1X/DAY
     Dates: start: 20230413
  2. LETROZOLE [Suspect]
     Active Substance: LETROZOLE
     Indication: Breast cancer metastatic
     Dosage: 2.5 MG, 1X/DAY
     Dates: start: 20230413
  3. CALCIUM CARBONATE\CHOLECALCIFEROL [Concomitant]
     Active Substance: CALCIUM CARBONATE\CHOLECALCIFEROL
     Dosage: SACHET (EFFERVESCENT GRANULES), 1.25 G (GRAM)/440 UNITS
  4. XGEVA [Concomitant]
     Active Substance: DENOSUMAB
     Dosage: INJECTION FLUID, 70 MG/ML (MILLIGRAMS PER MILLILITER)

REACTIONS (2)
  - Respiratory failure [Fatal]
  - Pulmonary hypertension [Fatal]
